FAERS Safety Report 15017627 (Version 9)
Quarter: 2019Q1

REPORT INFORMATION
  Report Type: Spontaneous
  Country: GB (occurrence: PL)
  Receive Date: 20180615
  Receipt Date: 20190131
  Transmission Date: 20190417
  Serious: Yes (Hospitalization, Other)
  Sender: FDA-Public Use
  Company Number: PL-BAUSCH-BL-2018-015912

PATIENT
  Age: 36 Year
  Sex: Female

DRUGS (40)
  1. CHLORDIAZEPOXIDE. [Suspect]
     Active Substance: CHLORDIAZEPOXIDE
     Indication: PRODUCT USED FOR UNKNOWN INDICATION
     Route: 065
  2. CHLORDIAZEPOXIDE. [Suspect]
     Active Substance: CHLORDIAZEPOXIDE
     Dosage: DOSE REDUCTION WAS SET AT 12.5 MG EVERY 4 DAYS
     Route: 065
  3. ZOLPIDEM [Suspect]
     Active Substance: ZOLPIDEM\ZOLPIDEM TARTRATE
     Dosage: DAILY DOSE WAS 40 - 50 MG IN THE EVENING BEFORE GOING SLEEP
     Route: 065
     Dates: start: 1995
  4. ZOLPIDEM [Suspect]
     Active Substance: ZOLPIDEM\ZOLPIDEM TARTRATE
     Dosage: DOSE OF ZOLPIDEM WAS REDUCED DURING SECOND HOSPITALISATION
     Route: 065
     Dates: start: 2010
  5. ZOLPIDEM [Suspect]
     Active Substance: ZOLPIDEM\ZOLPIDEM TARTRATE
     Dosage: 5 MILLIGRAM, QD
     Route: 065
     Dates: start: 2003
  6. ZOLPIDEM [Suspect]
     Active Substance: ZOLPIDEM\ZOLPIDEM TARTRATE
     Dosage: DOSE REDUCED DURING SECOND HOSPITALIZATION
     Route: 065
  7. HYDROXYZINE [Concomitant]
     Active Substance: HYDROXYZINE HYDROCHLORIDE
     Dosage: 150MG DAILY
     Route: 065
  8. HYDROXYZINE [Concomitant]
     Active Substance: HYDROXYZINE HYDROCHLORIDE
     Route: 065
  9. VALPROIC ACID. [Concomitant]
     Active Substance: VALPROIC ACID
     Indication: PRODUCT USED FOR UNKNOWN INDICATION
  10. CHLORDIAZEPOXIDE. [Suspect]
     Active Substance: CHLORDIAZEPOXIDE
     Dosage: DOSE REDUCTION WAS SET AT 12.5 MG EVERY 3 DAYS
     Route: 065
  11. ZOLPIDEM [Suspect]
     Active Substance: ZOLPIDEM\ZOLPIDEM TARTRATE
     Route: 065
  12. ZOLPIDEM [Suspect]
     Active Substance: ZOLPIDEM\ZOLPIDEM TARTRATE
     Dosage: DOSE REDUCTION WAS SET AT 5 MG PER DAY
     Route: 065
     Dates: start: 2010
  13. PROPRANOLOL HYDROCHLORIDE. [Concomitant]
     Active Substance: PROPRANOLOL HYDROCHLORIDE
     Indication: PRODUCT USED FOR UNKNOWN INDICATION
     Route: 065
  14. OMEPRAZOLE. [Concomitant]
     Active Substance: OMEPRAZOLE
     Indication: PRODUCT USED FOR UNKNOWN INDICATION
  15. ZOLPIDEM [Suspect]
     Active Substance: ZOLPIDEM\ZOLPIDEM TARTRATE
     Indication: LYMPHOMA
     Dosage: PATIENT WAS ADDICTED TO EXTREMELY HIGH DOSES OF ZOLPIDEM
     Route: 065
     Dates: start: 2008
  16. ZOLPIDEM [Suspect]
     Active Substance: ZOLPIDEM\ZOLPIDEM TARTRATE
     Route: 065
  17. HYDROXYZINE [Concomitant]
     Active Substance: HYDROXYZINE HYDROCHLORIDE
     Indication: PRODUCT USED FOR UNKNOWN INDICATION
     Route: 065
  18. OMEPRAZOLE. [Concomitant]
     Active Substance: OMEPRAZOLE
  19. CLORAZEPATE [Concomitant]
     Active Substance: CLORAZEPATE DIPOTASSIUM
     Indication: PRODUCT USED FOR UNKNOWN INDICATION
     Route: 065
  20. CODEINE PHOSPHATE [Suspect]
     Active Substance: CODEINE PHOSPHATE
     Route: 065
  21. CARBAMAZEPINE. [Concomitant]
     Active Substance: CARBAMAZEPINE
     Indication: PRODUCT USED FOR UNKNOWN INDICATION
     Route: 065
  22. CHLORDIAZEPOXIDE. [Suspect]
     Active Substance: CHLORDIAZEPOXIDE
     Route: 065
  23. ZOLPIDEM [Suspect]
     Active Substance: ZOLPIDEM\ZOLPIDEM TARTRATE
     Dosage: DAILY DOSE WAS 40 - 50 MG BEFORE GOING SLEEP
     Route: 065
  24. PARACETAMOL, CODEINE [Suspect]
     Active Substance: ACETAMINOPHEN\CODEINE PHOSPHATE
     Indication: PRODUCT USED FOR UNKNOWN INDICATION
     Dosage: 8 TABLETS EVERY 3 DAYS
     Route: 065
  25. CAFFEINE CITRATE. [Suspect]
     Active Substance: CAFFEINE CITRATE
     Indication: PRODUCT USED FOR UNKNOWN INDICATION
     Route: 065
  26. PARACETAMOL [Concomitant]
     Active Substance: ACETAMINOPHEN
     Indication: TENSION HEADACHE
     Dosage: TWICE
  27. PANCREATIN [Concomitant]
     Active Substance: PANCRELIPASE
     Indication: PRODUCT USED FOR UNKNOWN INDICATION
  28. POTASSIUM [Concomitant]
     Active Substance: POTASSIUM
     Indication: PRODUCT USED FOR UNKNOWN INDICATION
  29. DROTAVERINE HYDROCHLORIDE [Concomitant]
     Active Substance: DROTAVERINE HYDROCHLORIDE
     Indication: FEELING ABNORMAL
     Dosage: ONCE
  30. CHLORDIAZEPOXIDE. [Suspect]
     Active Substance: CHLORDIAZEPOXIDE
     Dosage: REDUCED DURING SECOND HOSPITALISATION
     Route: 065
  31. CODEINE PHOSPHATE [Suspect]
     Active Substance: CODEINE PHOSPHATE
     Dosage: DOSE REDUCTION WAS SET AT AT 15 MG EVERY 2 DAYS
     Route: 065
  32. CLORAZEPATE [Concomitant]
     Active Substance: CLORAZEPATE DIPOTASSIUM
     Route: 065
  33. ZOLPIDEM [Suspect]
     Active Substance: ZOLPIDEM\ZOLPIDEM TARTRATE
     Indication: SLEEP DISORDER
     Dosage: TOOK MORE AND MORE ZOLPIDEM,5 MG, QD
     Route: 065
     Dates: start: 2003
  34. ZOLPIDEM [Suspect]
     Active Substance: ZOLPIDEM\ZOLPIDEM TARTRATE
     Dosage: ZOLPIDEM WAS REDUCED DURING SECOND HOSPITALISATION
     Route: 065
     Dates: start: 2010
  35. CODEINE PHOSPHATE [Suspect]
     Active Substance: CODEINE PHOSPHATE
     Indication: PRODUCT USED FOR UNKNOWN INDICATION
     Dosage: DOSE REDUCTION WAS SET AT 7.5 MG EVERY 3 DAYS
     Route: 065
  36. MELATONIN [Concomitant]
     Active Substance: MELATONIN
     Indication: PRODUCT USED FOR UNKNOWN INDICATION
     Route: 065
  37. ZOLPIDEM [Suspect]
     Active Substance: ZOLPIDEM\ZOLPIDEM TARTRATE
     Dosage: DOSE REDUCED DURING SECOND HOSPITALISATION
     Route: 065
     Dates: start: 20141024
  38. ZOLPIDEM [Suspect]
     Active Substance: ZOLPIDEM\ZOLPIDEM TARTRATE
     Route: 065
  39. ZOLPIDEM [Suspect]
     Active Substance: ZOLPIDEM\ZOLPIDEM TARTRATE
     Route: 065
  40. MIRTAZAPINE. [Concomitant]
     Active Substance: MIRTAZAPINE
     Indication: PRODUCT USED FOR UNKNOWN INDICATION

REACTIONS (21)
  - Generalised tonic-clonic seizure [Recovered/Resolved]
  - Abnormal behaviour [Recovered/Resolved]
  - Drug withdrawal syndrome [Recovered/Resolved]
  - Condition aggravated [Recovered/Resolved]
  - Epilepsy [Recovered/Resolved]
  - Hyponatraemia [Recovered/Resolved]
  - Syncope [Unknown]
  - Overdose [Unknown]
  - Sleep disorder [Recovered/Resolved]
  - Irritability [Recovered/Resolved]
  - Tachycardia [Recovered/Resolved]
  - Hypotension [Unknown]
  - Mental disorder [Recovered/Resolved]
  - Drug dependence [Recovered/Resolved]
  - Drug ineffective [Unknown]
  - Anaemia [Recovered/Resolved]
  - Hypokalaemia [Recovered/Resolved]
  - Cognitive disorder [Recovered/Resolved]
  - Withdrawal syndrome [Unknown]
  - Drug abuse [Recovered/Resolved]
  - Pancreatitis acute [Recovered/Resolved]

NARRATIVE: CASE EVENT DATE: 2014
